FAERS Safety Report 17049035 (Version 1)
Quarter: 2019Q4

REPORT INFORMATION
  Report Type: Spontaneous
  Country: US (occurrence: US)
  Receive Date: 20191119
  Receipt Date: 20191119
  Transmission Date: 20200122
  Serious: No
  Sender: FDA-Public Use
  Company Number: US-SA-2019SA312505

PATIENT
  Sex: Female

DRUGS (9)
  1. ACETAMINOPHEN;CODEINE [Concomitant]
     Active Substance: ACETAMINOPHEN\CODEINE PHOSPHATE
  2. BUDESONIDE. [Concomitant]
     Active Substance: BUDESONIDE
  3. BREO ELLIPTA [Concomitant]
     Active Substance: FLUTICASONE FUROATE\VILANTEROL TRIFENATATE
  4. AMLODIPINE BESILATE [Concomitant]
     Active Substance: AMLODIPINE BESYLATE
  5. DUPIXENT [Suspect]
     Active Substance: DUPILUMAB
     Dosage: 300 MG, QOW
     Route: 058
     Dates: start: 20191022
  6. MONTELUKAST SODIUM. [Concomitant]
     Active Substance: MONTELUKAST SODIUM
  7. CEFDINIR. [Concomitant]
     Active Substance: CEFDINIR
  8. MMR II [Concomitant]
  9. SULFAMETHOXAZOLE AND TRIMETHOPRIM [Concomitant]
     Active Substance: SULFAMETHOXAZOLE\TRIMETHOPRIM

REACTIONS (3)
  - Fatigue [Unknown]
  - Diarrhoea [Unknown]
  - Nasopharyngitis [Unknown]
